FAERS Safety Report 13538279 (Version 1)
Quarter: 2017Q2

REPORT INFORMATION
  Report Type: Report from Study
  Country: FR (occurrence: FR)
  Receive Date: 20170512
  Receipt Date: 20170512
  Transmission Date: 20170830
  Serious: Yes (Other)
  Sender: FDA-Public Use
  Company Number: FR-ROCHE-1933853

PATIENT

DRUGS (2)
  1. ALTEPLASE [Suspect]
     Active Substance: ALTEPLASE
     Indication: CEREBRAL ISCHAEMIA
     Dosage: MAXIMUM OF 90MG, 10% OF DOSE AS BOLUS FOLLOWED BY A 60-MIN INFUSION VIA INTRAVENOUS ROUTE
     Route: 040
  2. ALTEPLASE [Suspect]
     Active Substance: ALTEPLASE
     Dosage: MAXIMUM OF 90MG, 10% OF DOSE AS BOLUS FOLLOWED BY A 60-MIN INFUSION VIA INTRAVENOUS ROUTE
     Route: 042

REACTIONS (1)
  - Intestinal infarction [Unknown]
